FAERS Safety Report 11125164 (Version 2)
Quarter: 2015Q2

REPORT INFORMATION
  Report Type: Spontaneous
  Country: US (occurrence: US)
  Receive Date: 20150520
  Receipt Date: 20150629
  Transmission Date: 20150821
  Serious: Yes (Other)
  Sender: FDA-Public Use
  Company Number: US-PFIZER INC-2015167845

PATIENT
  Age: 66 Year
  Sex: Female

DRUGS (7)
  1. NEURONTIN [Suspect]
     Active Substance: GABAPENTIN
     Indication: RADICULOPATHY
  2. NEURONTIN [Suspect]
     Active Substance: GABAPENTIN
     Indication: BURNING SENSATION
  3. NEURONTIN [Suspect]
     Active Substance: GABAPENTIN
     Indication: PAIN
  4. NEURONTIN [Suspect]
     Active Substance: GABAPENTIN
     Indication: PARAESTHESIA
  5. NEURONTIN [Suspect]
     Active Substance: GABAPENTIN
     Indication: HYPOAESTHESIA
  6. NEURONTIN [Suspect]
     Active Substance: GABAPENTIN
     Indication: MYALGIA
     Dosage: UNK
     Dates: start: 2013
  7. GRALISE [Suspect]
     Active Substance: GABAPENTIN
     Indication: PAIN
     Dosage: UNK
     Dates: start: 2014

REACTIONS (4)
  - Arthropathy [Recovered/Resolved]
  - Dyskinesia [Recovered/Resolved]
  - Muscle spasms [Unknown]
  - Product use issue [Unknown]
